FAERS Safety Report 11016706 (Version 2)
Quarter: 2015Q2

REPORT INFORMATION
  Report Type: Spontaneous
  Country: US (occurrence: US)
  Receive Date: 20150412
  Receipt Date: 20150525
  Transmission Date: 20150821
  Serious: No
  Sender: FDA-Public Use
  Company Number: US-JNJFOC-20140710601

PATIENT
  Sex: Female

DRUGS (1)
  1. ORTHO-NOVUM 777 [Suspect]
     Active Substance: ETHINYL ESTRADIOL\NORETHINDRONE
     Indication: PRODUCT USED FOR UNKNOWN INDICATION
     Dosage: STARTED 25 YEARS AGO
     Route: 048

REACTIONS (3)
  - Product blister packaging issue [Unknown]
  - Extra dose administered [Recovered/Resolved]
  - Wrong technique in drug usage process [Recovered/Resolved]

NARRATIVE: CASE EVENT DATE: 2014
